FAERS Safety Report 17007880 (Version 2)
Quarter: 2019Q4

REPORT INFORMATION
  Report Type: Spontaneous
  Country: US (occurrence: US)
  Receive Date: 20191108
  Receipt Date: 20191205
  Transmission Date: 20200122
  Serious: No
  Sender: FDA-Public Use
  Company Number: US-GLAXOSMITHKLINE-US2019198889

PATIENT
  Sex: Female

DRUGS (1)
  1. ABREVA [Suspect]
     Active Substance: DOCOSANOL
     Indication: ORAL HERPES
     Dosage: UNK, (1 APPLICATION ALMOST 5 TIMES
     Dates: start: 20191014, end: 20191024

REACTIONS (3)
  - Inappropriate schedule of product administration [Unknown]
  - Oral herpes [Recovered/Resolved]
  - Condition aggravated [Recovered/Resolved]
